FAERS Safety Report 5736901-1 (Version None)
Quarter: 2008Q2

REPORT INFORMATION
  Report Type: 
  Country: None (occurrence: None)
  Receive Date: 20080509
  Receipt Date: 20080424
  Transmission Date: 20081010
  Serious: Yes (Other)
  Sender: FDA-Public Use
  Company Number: IDA-00009

PATIENT
  Sex: Female

DRUGS (2)
  1. PROPRANOLOL [Suspect]
     Indication: HYPERTENSION
  2. LISINOPRIL AND HYDROCHLOROTHIAZIDE [Suspect]
     Indication: HYPERTENSION

REACTIONS (7)
  - AMNIOTIC FLUID VOLUME DECREASED [None]
  - ANGIOTENSIN CONVERTING ENZYME INHIBITOR FOETOPATHY [None]
  - CAESAREAN SECTION [None]
  - DRUG EXPOSURE DURING PREGNANCY [None]
  - FOETAL DISTRESS SYNDROME [None]
  - MATERNAL DRUGS AFFECTING FOETUS [None]
  - OLIGOHYDRAMNIOS [None]
